FAERS Safety Report 17388664 (Version 3)
Quarter: 2020Q4

REPORT INFORMATION
  Report Type: Spontaneous
  Country: US (occurrence: US)
  Receive Date: 20200207
  Receipt Date: 20201014
  Transmission Date: 20210113
  Serious: No
  Sender: FDA-Public Use
  Company Number: US-PFIZER INC-2020056541

PATIENT
  Age: 88 Year
  Sex: Female

DRUGS (1)
  1. LYRICA [Suspect]
     Active Substance: PREGABALIN
     Indication: FACIAL PAIN
     Dosage: 100 MG, 2X/DAY [SIG: TAKE 1 CAPSULE TWICE DAILY]
     Route: 048

REACTIONS (2)
  - Hypoacusis [Unknown]
  - Malaise [Unknown]
